FAERS Safety Report 9013614 (Version 1)
Quarter: 2013Q1

REPORT INFORMATION
  Report Type: Spontaneous
  Country: US (occurrence: None)
  Receive Date: 20130109
  Receipt Date: 20130109
  Transmission Date: 20140127
  Serious: Yes (Hospitalization)
  Sender: FDA-Public Use
  Company Number: None

PATIENT
  Sex: Female
  Weight: 65 kg

DRUGS (1)
  1. CYCLOPHOSPHAMIDE [Suspect]
     Dates: end: 20121221

REACTIONS (7)
  - Febrile neutropenia [None]
  - Thrombocytopenia [None]
  - Anaemia [None]
  - Hypocalcaemia [None]
  - Fatigue [None]
  - White blood cell count decreased [None]
  - Oesophagitis [None]
